FAERS Safety Report 25796466 (Version 2)
Quarter: 2025Q3

REPORT INFORMATION
  Report Type: Spontaneous
  Country: US (occurrence: US)
  Receive Date: 20250912
  Receipt Date: 20250918
  Transmission Date: 20251021
  Serious: No
  Sender: SANOFI AVENTIS
  Company Number: US-SA-2025SA269493

PATIENT
  Age: 55 Year
  Sex: Female

DRUGS (1)
  1. DUPIXENT [Suspect]
     Active Substance: DUPILUMAB
     Indication: Eosinophilic oesophagitis
     Dosage: 300 MG, QW
     Route: 058
     Dates: start: 202507

REACTIONS (2)
  - Injection site pruritus [Recovered/Resolved]
  - Injection site urticaria [Recovered/Resolved]

NARRATIVE: CASE EVENT DATE: 20250101
